FAERS Safety Report 5263295-0 (Version None)
Quarter: 2007Q1

REPORT INFORMATION
  Report Type: 
  Country: None (occurrence: None)
  Receive Date: 20061219
  Receipt Date: 20061006
  Transmission Date: 20070707
  Serious: No
  Sender: FDA-Public Use
  Company Number: 2006US001961

PATIENT
  Sex: Female

DRUGS (1)
  1. VESICARE [Suspect]
     Dosage: 5 MG, ORAL
     Route: 048
     Dates: start: 20060908

REACTIONS (4)
  - CHILLS [None]
  - EYE PAIN [None]
  - PYREXIA [None]
  - URINARY TRACT INFECTION [None]
